FAERS Safety Report 12883826 (Version 1)
Quarter: 2016Q4

REPORT INFORMATION
  Report Type: Spontaneous
  Country: GB (occurrence: GB)
  Receive Date: 20161026
  Receipt Date: 20161026
  Transmission Date: 20170207
  Serious: Yes (Death, Other)
  Sender: FDA-Public Use
  Company Number: GB-ACCORD-044983

PATIENT
  Age: 45 Year
  Sex: Male
  Weight: 78 kg

DRUGS (11)
  1. DULOXETINE. [Concomitant]
     Active Substance: DULOXETINE
  2. ZOLPIDEM [Concomitant]
     Active Substance: ZOLPIDEM\ZOLPIDEM TARTRATE
  3. DEPAKOTE [Concomitant]
     Active Substance: DIVALPROEX SODIUM
  4. NAPROXEN. [Concomitant]
     Active Substance: NAPROXEN
  5. CLOZAPINE. [Suspect]
     Active Substance: CLOZAPINE
     Indication: SCHIZOPHRENIA
     Route: 048
     Dates: start: 20080612, end: 20160116
  6. ATORVASTATIN [Concomitant]
     Active Substance: ATORVASTATIN
  7. LAMOTRIGINE. [Concomitant]
     Active Substance: LAMOTRIGINE
  8. LORAZEPAM. [Concomitant]
     Active Substance: LORAZEPAM
  9. AMISULPRIDE [Concomitant]
     Active Substance: AMISULPRIDE
  10. ZAPAIN [Concomitant]
     Active Substance: ACETAMINOPHEN\CODEINE PHOSPHATE
  11. TRAMADOL/TRAMADOL HYDROCHLORIDE [Suspect]
     Active Substance: TRAMADOL HYDROCHLORIDE
     Indication: PRODUCT USED FOR UNKNOWN INDICATION

REACTIONS (9)
  - Arteriosclerosis coronary artery [Fatal]
  - Aspiration [Not Recovered/Not Resolved]
  - Acute left ventricular failure [Not Recovered/Not Resolved]
  - Steatohepatitis [Not Recovered/Not Resolved]
  - Toxicity to various agents [Fatal]
  - Respiratory tract congestion [Not Recovered/Not Resolved]
  - Pulmonary oedema [Not Recovered/Not Resolved]
  - Antipsychotic drug level increased [Fatal]
  - Haematemesis [None]
